FAERS Safety Report 23429526 (Version 1)
Quarter: 2024Q1

REPORT INFORMATION
  Report Type: Spontaneous
  Country: US (occurrence: None)
  Receive Date: 20240122
  Receipt Date: 20240122
  Transmission Date: 20240410
  Serious: No
  Sender: FDA-Public Use
  Company Number: None

PATIENT
  Sex: Female
  Weight: 101.25 kg

DRUGS (6)
  1. CONTRAVE [Suspect]
     Active Substance: BUPROPION HYDROCHLORIDE\NALTREXONE HYDROCHLORIDE
     Indication: Weight decreased
     Dosage: OTHER QUANTITY : 1 TABLET(S);?
     Route: 048
     Dates: start: 20240116, end: 20240116
  2. LEVOTHYROXINE [Concomitant]
     Active Substance: LEVOTHYROXINE\LEVOTHYROXINE SODIUM
  3. ESTRADIOL [Concomitant]
     Active Substance: ESTRADIOL
  4. PROGESTERONE [Concomitant]
     Active Substance: PROGESTERONE
  5. ADVIL [Concomitant]
     Active Substance: IBUPROFEN
  6. alieve [Concomitant]

REACTIONS (11)
  - Headache [None]
  - Tinnitus [None]
  - Dizziness [None]
  - Dizziness [None]
  - Eye disorder [None]
  - Photosensitivity reaction [None]
  - Hand-eye coordination impaired [None]
  - Vomiting [None]
  - Somnolence [None]
  - Respiratory rate decreased [None]
  - Brain fog [None]
